FAERS Safety Report 22386153 (Version 2)
Quarter: 2023Q2

REPORT INFORMATION
  Report Type: Spontaneous
  Country: US (occurrence: US)
  Receive Date: 20230530
  Receipt Date: 20230627
  Transmission Date: 20230722
  Serious: No
  Sender: FDA-Public Use
  Company Number: US-BIOMARINAP-US-2023-150651

PATIENT

DRUGS (4)
  1. KUVAN [Suspect]
     Active Substance: SAPROPTERIN DIHYDROCHLORIDE
     Indication: Phenylketonuria
     Dosage: 700 MILLIGRAM, QD
     Route: 048
  2. KUVAN [Suspect]
     Active Substance: SAPROPTERIN DIHYDROCHLORIDE
     Dosage: 600 MILLIGRAM, QD
     Route: 048
  3. Multivitamin gummy bears [Concomitant]
     Indication: Product used for unknown indication
  4. PERIFLEX [Concomitant]
     Indication: Product used for unknown indication

REACTIONS (3)
  - Amino acid level increased [Unknown]
  - Viral infection [Unknown]
  - Illness [Unknown]

NARRATIVE: CASE EVENT DATE: 20230401
